FAERS Safety Report 13218946 (Version 1)
Quarter: 2017Q1

REPORT INFORMATION
  Report Type: Other
  Country: US (occurrence: US)
  Receive Date: 20170210
  Receipt Date: 20170210
  Transmission Date: 20170428
  Serious: Yes (Other)
  Sender: FDA-Public Use
  Company Number: US-ACORDA-ACO_127943_2016

PATIENT
  Age: 38 Year
  Sex: Male

DRUGS (1)
  1. AMPYRA [Suspect]
     Active Substance: DALFAMPRIDINE
     Indication: PRODUCT USED FOR UNKNOWN INDICATION
     Route: 065

REACTIONS (25)
  - Blindness unilateral [Recovering/Resolving]
  - Choking [Unknown]
  - Vision blurred [Unknown]
  - Dysphonia [Unknown]
  - Walking aid user [Unknown]
  - Dysphagia [Unknown]
  - Gait disturbance [Unknown]
  - Asthenia [Not Recovered/Not Resolved]
  - Drug ineffective [Unknown]
  - Fall [Unknown]
  - Abasia [Unknown]
  - Muscular weakness [Not Recovered/Not Resolved]
  - Multiple sclerosis relapse [Not Recovered/Not Resolved]
  - Inappropriate schedule of drug administration [Unknown]
  - Epistaxis [Unknown]
  - Limb injury [Unknown]
  - Weight decreased [Unknown]
  - Balance disorder [Unknown]
  - Anxiety [Unknown]
  - Dysarthria [Unknown]
  - Movement disorder [Unknown]
  - Condition aggravated [Unknown]
  - Headache [Unknown]
  - Back pain [Unknown]
  - Dizziness [Unknown]

NARRATIVE: CASE EVENT DATE: 20101222
